FAERS Safety Report 8174638-2 (Version None)
Quarter: 2012Q1

REPORT INFORMATION
  Report Type: 
  Country: None (occurrence: None)
  Receive Date: 20120229
  Receipt Date: 20120222
  Transmission Date: 20120608
  Serious: Yes (Life-Threatening, Hospitalization, Other)
  Sender: FDA-Public Use
  Company Number: US-JNJFOC-20120107567

PATIENT
  Sex: Male
  Weight: 71.22 kg

DRUGS (5)
  1. REMICADE [Suspect]
     Indication: CROHN'S DISEASE
     Dosage: 11 INFUSIONS BETWEEN THESE DATES
     Route: 042
     Dates: start: 20020509, end: 20040716
  2. REMICADE [Suspect]
     Route: 042
  3. REMICADE [Suspect]
     Dosage: 29 INFUSIONS BETWEEN THESE DATES
     Route: 042
     Dates: start: 20060626, end: 20110314
  4. REMICADE [Suspect]
     Route: 042
     Dates: start: 20060321
  5. REMICADE [Suspect]
     Dosage: 10 INFUSIONS BETWEEN THESE DATES
     Route: 042
     Dates: start: 20040908, end: 20060117

REACTIONS (2)
  - DIABETIC KETOACIDOSIS [None]
  - DIABETES MELLITUS [None]
